FAERS Safety Report 5639730-2 (Version None)
Quarter: 2008Q1

REPORT INFORMATION
  Report Type: 
  Country: None (occurrence: None)
  Receive Date: 20080222
  Receipt Date: 20080213
  Transmission Date: 20080703
  Serious: Yes (Hospitalization, Other)
  Sender: FDA-Public Use
  Company Number: JPI-P-001726

PATIENT
  Age: 43 Year
  Sex: Female
  Weight: 108.8633 kg

DRUGS (8)
  1. XYREM (OXYBATE SODIUM) (500 MILLIGRAM/MILLILITERS, SOLUTION) (SODIUM O [Suspect]
     Indication: FIBROMYALGIA
     Dosage: ORAL; 9 GM, (4.5 GM, 2 IN 1 D), ORAL
     Route: 048
     Dates: start: 20040801
  2. XYREM (OXYBATE SODIUM) (500 MILLIGRAM/MILLILITERS, SOLUTION) (SODIUM O [Suspect]
     Indication: SLEEP DISORDER
     Dosage: ORAL; 9 GM, (4.5 GM, 2 IN 1 D), ORAL
     Route: 048
     Dates: start: 20040801
  3. TRAZODONE HCL [Concomitant]
  4. MODAFINIL [Concomitant]
  5. ROSUVASTATIN CALCTUM (ROSUVASTATIN CALCIUM) [Concomitant]
  6. PROGESTERONE [Concomitant]
  7. LEVOTHYROXINE SODIUM [Concomitant]
  8. DULOXETINE HYDROCHLORIDE (DULOXETINE HYDROCHLORIDE) [Concomitant]

REACTIONS (15)
  - CONCUSSION [None]
  - CONTUSION [None]
  - DEPRESSED LEVEL OF CONSCIOUSNESS [None]
  - DEPRESSION [None]
  - FACE INJURY [None]
  - FALL [None]
  - HEAD INJURY [None]
  - HEADACHE [None]
  - HYPOAESTHESIA FACIAL [None]
  - IMPAIRED HEALING [None]
  - MOUTH INJURY [None]
  - PAIN [None]
  - SCAR [None]
  - SOCIAL AVOIDANT BEHAVIOUR [None]
  - SWELLING FACE [None]
